FAERS Safety Report 15278655 (Version 2)
Quarter: 2018Q3

REPORT INFORMATION
  Report Type: Report from Study
  Country: None (occurrence: US)
  Receive Date: 20180815
  Receipt Date: 20180904
  Transmission Date: 20181010
  Serious: Yes (Hospitalization, Other)
  Sender: FDA-Public Use
  Company Number: US-ABBVIE-18K-163-2401844-00

PATIENT
  Sex: Male
  Weight: 81.27 kg

DRUGS (3)
  1. HUMIRA [Suspect]
     Active Substance: ADALIMUMAB
     Dosage: DAY 15
     Route: 058
     Dates: start: 20170910, end: 20170910
  2. HUMIRA [Suspect]
     Active Substance: ADALIMUMAB
     Dosage: DAY 29
     Route: 058
     Dates: start: 20170924
  3. HUMIRA [Suspect]
     Active Substance: ADALIMUMAB
     Indication: CROHN^S DISEASE
     Dosage: DAY 1
     Route: 058
     Dates: start: 20170827, end: 20170827

REACTIONS (14)
  - Rib fracture [Recovering/Resolving]
  - Oxygen saturation decreased [Recovered/Resolved]
  - Vomiting [Recovering/Resolving]
  - Atrial fibrillation [Recovering/Resolving]
  - Pain [Recovering/Resolving]
  - Rectal haemorrhage [Recovering/Resolving]
  - Diarrhoea [Recovering/Resolving]
  - Fall [Recovered/Resolved]
  - Abdominal pain upper [Recovering/Resolving]
  - Loss of personal independence in daily activities [Recovering/Resolving]
  - Nasopharyngitis [Recovering/Resolving]
  - Lung perforation [Recovered/Resolved]
  - Injury [Unknown]
  - Nausea [Recovering/Resolving]

NARRATIVE: CASE EVENT DATE: 201806
